FAERS Safety Report 5357688-0 (Version None)
Quarter: 2007Q2

REPORT INFORMATION
  Report Type: 
  Country: None (occurrence: None)
  Receive Date: 20070614
  Receipt Date: 20070603
  Transmission Date: 20071010
  Serious: Yes (Other)
  Sender: FDA-Public Use
  Company Number: TR-PFIZER INC-2007046491

PATIENT
  Sex: Female

DRUGS (5)
  1. GABAPENTIN [Suspect]
     Indication: PAIN IN EXTREMITY
  2. GABAPENTIN [Suspect]
     Indication: NEURALGIA
  3. PREGABALIN [Suspect]
     Indication: NEURALGIA
     Route: 048
  4. TRAMADOL HCL [Concomitant]
  5. DIAZEPAM [Concomitant]

REACTIONS (2)
  - BREAST MASS [None]
  - DRUG INEFFECTIVE [None]
